FAERS Safety Report 6941957-4 (Version None)
Quarter: 2010Q3

REPORT INFORMATION
  Report Type: 
  Country: None (occurrence: None)
  Receive Date: 20100826
  Receipt Date: 20100819
  Transmission Date: 20110219
  Serious: Yes (Other)
  Sender: FDA-Public Use
  Company Number: US-RB-014440-10

PATIENT
  Age: 55 Year
  Sex: Male

DRUGS (2)
  1. SUBOXONE [Suspect]
     Indication: DRUG DEPENDENCE
     Route: 060
     Dates: start: 20100801
  2. NEUROTONIN [Concomitant]
     Indication: NEUROPATHY PERIPHERAL
     Dosage: UNKNOWN DOSING DETAILS
     Route: 065

REACTIONS (4)
  - DEHYDRATION [None]
  - DYSARTHRIA [None]
  - LOSS OF CONSCIOUSNESS [None]
  - SOMNOLENCE [None]
